FAERS Safety Report 9713792 (Version 1)
Quarter: 2013Q4

REPORT INFORMATION
  Report Type: Spontaneous
  Country: US (occurrence: None)
  Receive Date: 20131125
  Receipt Date: 20131125
  Transmission Date: 20140711
  Serious: Yes (Other)
  Sender: FDA-Public Use
  Company Number: None

PATIENT
  Age: 90 Year
  Sex: Male
  Weight: 39.01 kg

DRUGS (1)
  1. EXJADE [Suspect]
     Route: 048
     Dates: start: 20131024, end: 20131120

REACTIONS (1)
  - Laboratory test abnormal [None]
